FAERS Safety Report 9113566 (Version 1)
Quarter: 2013Q1

REPORT INFORMATION
  Report Type: Report from Study
  Country: JP (occurrence: JP)
  Receive Date: 20130208
  Receipt Date: 20130208
  Transmission Date: 20140127
  Serious: Yes (Other)
  Sender: FDA-Public Use
  Company Number: JP-B.I. PHARMACEUTICALS,INC./RIDGEFIELD-2012-BP-14577NB

PATIENT
  Age: 68 Year
  Sex: Male
  Weight: 82 kg

DRUGS (6)
  1. PRAZAXA [Suspect]
     Indication: ATRIAL FIBRILLATION
     Dosage: 220 MG
     Route: 048
     Dates: start: 20120603
  2. PRAZAXA [Suspect]
     Indication: CEREBROVASCULAR ACCIDENT PROPHYLAXIS
  3. MAINTATE [Suspect]
     Dosage: 5 MG
     Route: 048
     Dates: start: 20120609, end: 20120620
  4. CRESTOR [Concomitant]
     Dosage: 2.5 MG
     Route: 048
  5. MICARDIS [Concomitant]
     Dosage: 40 MG
     Route: 048
     Dates: end: 20120609
  6. ADALAT-CR [Concomitant]
     Dosage: 20 MG
     Route: 048
     Dates: end: 20120609

REACTIONS (2)
  - Cardiac failure [Recovered/Resolved]
  - Liver disorder [Recovered/Resolved]
